FAERS Safety Report 4380865-2 (Version None)
Quarter: 2004Q2

REPORT INFORMATION
  Report Type: 
  Country: None (occurrence: None)
  Receive Date: 20040616
  Receipt Date: 20040604
  Transmission Date: 20050107
  Serious: No
  Sender: FDA-Public Use
  Company Number: 04P-087-0262925-00

PATIENT
  Age: 54 Year
  Sex: Female

DRUGS (3)
  1. TRICOR [Suspect]
     Dosage: PER ORAL
     Route: 048
  2. BLOPRESS TABLETS (CANDESARTAN CILEXETIL) (CANDESARTAN CILEXETIL) [Suspect]
     Indication: HYPERTENSION
     Dosage: 4 MG, 1 IN 1 D, PER ORAL
     Route: 048
     Dates: start: 20040313, end: 20040527
  3. METFORMIN HCL [Suspect]
     Dosage: 500 MG, 1 IN 1 D, PER ORAL
     Route: 048

REACTIONS (7)
  - ALANINE AMINOTRANSFERASE INCREASED [None]
  - ASPARTATE AMINOTRANSFERASE INCREASED [None]
  - BLOOD ALKALINE PHOSPHATASE INCREASED [None]
  - BLOOD LACTATE DEHYDROGENASE INCREASED [None]
  - GAMMA-GLUTAMYLTRANSFERASE INCREASED [None]
  - JAUNDICE [None]
  - LIVER DISORDER [None]
